FAERS Safety Report 8891377 (Version 1)
Quarter: 2012Q4

REPORT INFORMATION
  Report Type: Spontaneous
  Country: US (occurrence: None)
  Receive Date: 20121105
  Receipt Date: 20121105
  Transmission Date: 20130627
  Serious: Yes (Other)
  Sender: FDA-Public Use
  Company Number: None

PATIENT
  Age: 48 Year
  Sex: Female
  Weight: 57.74 kg

DRUGS (1)
  1. ISONIAZID [Suspect]
     Indication: TUBERCULOSIS PROPHYLAXIS
     Dosage: 300 mh  oad  047
     Dates: start: 20100505, end: 20101103

REACTIONS (10)
  - Weight increased [None]
  - Menopausal symptoms [None]
  - Goitre [None]
  - Quality of life decreased [None]
  - Rash [None]
  - Dry skin [None]
  - Arthralgia [None]
  - Hypoaesthesia [None]
  - Amenorrhoea [None]
  - Lichen sclerosus [None]
